FAERS Safety Report 10195073 (Version 2)
Quarter: 2014Q2

REPORT INFORMATION
  Report Type: Spontaneous
  Country: US (occurrence: US)
  Receive Date: 20140526
  Receipt Date: 20140609
  Transmission Date: 20141212
  Serious: Yes (Other)
  Sender: FDA-Public Use
  Company Number: US-PFIZER INC-2014140023

PATIENT
  Age: 61 Year
  Sex: Male
  Weight: 78.01 kg

DRUGS (8)
  1. LYRICA [Suspect]
     Indication: NECK PAIN
     Dosage: 200 MG, 3X/DAY
     Route: 048
     Dates: start: 201302
  2. LYRICA [Suspect]
     Indication: MUSCULOSKELETAL PAIN
  3. HYDROCHLOROTHIAZIDE [Concomitant]
     Indication: HYPERTENSION
     Dosage: UNK
  4. SYNTHROID [Concomitant]
     Indication: HYPOTHYROIDISM
     Dosage: 100 UG, UNK
  5. CENTRUM SILVER [Concomitant]
     Dosage: UNK
  6. TYLENOL [Concomitant]
     Dosage: UNK
  7. OXYCODONE [Concomitant]
     Dosage: UNK
  8. BUTRANS [Concomitant]
     Dosage: UNK

REACTIONS (1)
  - Non-Hodgkin^s lymphoma [Unknown]
